FAERS Safety Report 16450904 (Version 3)
Quarter: 2019Q3

REPORT INFORMATION
  Report Type: Spontaneous
  Country: JP (occurrence: JP)
  Receive Date: 20190619
  Receipt Date: 20190718
  Transmission Date: 20191004
  Serious: Yes (Other)
  Sender: FDA-Public Use
  Company Number: JP-CELGENEUS-JPN-20190606222

PATIENT
  Age: 9 Decade
  Sex: Male

DRUGS (2)
  1. VIDAZA [Suspect]
     Active Substance: AZACITIDINE
     Indication: MYELODYSPLASTIC SYNDROME
     Route: 065
     Dates: end: 20190610
  2. VIDAZA [Suspect]
     Active Substance: AZACITIDINE
     Route: 065

REACTIONS (1)
  - Transformation to acute myeloid leukaemia [Recovered/Resolved]

NARRATIVE: CASE EVENT DATE: 20190610
